FAERS Safety Report 8829270 (Version 1)
Quarter: 2012Q4

REPORT INFORMATION
  Report Type: Spontaneous
  Country: US (occurrence: None)
  Receive Date: 20121005
  Receipt Date: 20121005
  Transmission Date: 20130627
  Serious: No
  Sender: FDA-Public Use
  Company Number: None

PATIENT
  Age: 74 Year
  Sex: Female
  Weight: 60.78 kg

DRUGS (1)
  1. DORZOLAMIDE HYDROCHLORIDE-TIMOLOL MALEATE OPHTHALMIC SOLUTION [Suspect]
     Dosage: 1 drop 2x/day in eyes
     Dates: start: 20120815, end: 20120821

REACTIONS (2)
  - Insomnia [None]
  - Alopecia [None]
